FAERS Safety Report 5512226-4 (Version None)
Quarter: 2007Q4

REPORT INFORMATION
  Report Type: 
  Country: None (occurrence: None)
  Receive Date: 20071112
  Receipt Date: 20071031
  Transmission Date: 20080405
  Serious: Yes (Hospitalization)
  Sender: FDA-Public Use
  Company Number: PHBS2007NL18280

PATIENT
  Age: 46 Year
  Sex: Male

DRUGS (3)
  1. CLOZAPINE [Suspect]
     Indication: SCHIZOPHRENIA, PARANOID TYPE
     Route: 065
  2. CIPROFLOXACIN [Suspect]
     Indication: UROSEPSIS
     Route: 065
  3. AMOXICILLIN [Concomitant]
     Indication: UROSEPSIS
     Route: 065

REACTIONS (10)
  - ALANINE AMINOTRANSFERASE INCREASED [None]
  - ANTIPSYCHOTIC DRUG LEVEL INCREASED [None]
  - ASPARTATE AMINOTRANSFERASE INCREASED [None]
  - BLOOD CREATINE PHOSPHOKINASE INCREASED [None]
  - BLOOD LACTATE DEHYDROGENASE INCREASED [None]
  - DRUG INTERACTION [None]
  - RHABDOMYOLYSIS [None]
  - TACHYCARDIA [None]
  - UROSEPSIS [None]
  - WEIGHT DECREASED [None]
